FAERS Safety Report 8361827-7 (Version None)
Quarter: 2012Q2

REPORT INFORMATION
  Report Type: 
  Country: None (occurrence: None)
  Receive Date: 20120515
  Receipt Date: 20120508
  Transmission Date: 20120825
  Serious: Yes (Hospitalization)
  Sender: FDA-Public Use
  Company Number: JP-GLAXOSMITHKLINE-B0800904A

PATIENT

DRUGS (4)
  1. ANTI ALLERGIC DRUG [Concomitant]
     Route: 065
  2. LAMICTAL [Suspect]
     Indication: BIPOLAR DISORDER
     Route: 048
  3. ZOLOFT [Concomitant]
     Route: 048
  4. LITHIUM CARBONATE [Concomitant]
     Route: 048

REACTIONS (2)
  - NEUROLEPTIC MALIGNANT SYNDROME [None]
  - RHABDOMYOLYSIS [None]
